FAERS Safety Report 4543285-3 (Version None)
Quarter: 2004Q4

REPORT INFORMATION
  Report Type: 
  Country: None (occurrence: None)
  Receive Date: 20041229
  Receipt Date: 20041217
  Transmission Date: 20050328
  Serious: Yes (Hospitalization)
  Sender: FDA-Public Use
  Company Number: 2004CG02560

PATIENT
  Age: 83 Year
  Sex: Female

DRUGS (4)
  1. FLODIL [Suspect]
     Dates: end: 20041209
  2. ZOCOR [Suspect]
     Dates: end: 20041209
  3. COZAAR [Suspect]
     Dates: end: 20041209
  4. KARDEGIC [Concomitant]

REACTIONS (2)
  - ECZEMA [None]
  - PRURITUS [None]
